FAERS Safety Report 23743112 (Version 1)
Quarter: 2024Q2

REPORT INFORMATION
  Report Type: Report from Study
  Country: US (occurrence: None)
  Receive Date: 20240415
  Receipt Date: 20240415
  Transmission Date: 20240716
  Serious: Yes (Death, Hospitalization, Other)
  Sender: FDA-Public Use
  Company Number: 2020SF70806

PATIENT
  Age: 26791 Day
  Sex: Female

DRUGS (1)
  1. FARXIGA [Suspect]
     Active Substance: DAPAGLIFLOZIN PROPANEDIOL
     Route: 048

REACTIONS (8)
  - Ejection fraction decreased [Unknown]
  - Cardiovascular disorder [Unknown]
  - Cardiac failure [Fatal]
  - Renal failure [Fatal]
  - Pneumonia [Fatal]
  - SARS-CoV-2 test positive [Fatal]
  - Diabetes mellitus [Unknown]
  - Malaise [Unknown]
